FAERS Safety Report 10621690 (Version 10)
Quarter: 2016Q1

REPORT INFORMATION
  Report Type: Report from Study
  Country: EC (occurrence: EC)
  Receive Date: 20141203
  Receipt Date: 20160203
  Transmission Date: 20160525
  Serious: Yes (Hospitalization)
  Sender: FDA-Public Use
  Company Number: PHHY2014EC153572

PATIENT
  Age: 15 Year
  Sex: Male
  Weight: 53 kg

DRUGS (7)
  1. CYCLOSPORIN [Concomitant]
     Active Substance: CYCLOSPORINE
     Indication: PRODUCT USED FOR UNKNOWN INDICATION
     Dosage: 1 OT, QD
     Route: 065
  2. ACIDO FOLICO//FOLIC ACID [Concomitant]
     Active Substance: FOLIC ACID
     Indication: PRODUCT USED FOR UNKNOWN INDICATION
     Dosage: 1 OT, QD
     Route: 065
  3. B COMPLEX                          /00322001/ [Concomitant]
     Indication: PRODUCT USED FOR UNKNOWN INDICATION
     Dosage: 10 CM3, QD
     Route: 065
  4. PREDNISONE. [Concomitant]
     Active Substance: PREDNISONE
     Indication: PRODUCT USED FOR UNKNOWN INDICATION
     Dosage: 1 OT, QD
     Route: 065
  5. EXJADE [Suspect]
     Active Substance: DEFERASIROX
     Dosage: 20 MG/KG, QD (500 MG TWICE A DAY)
     Route: 048
     Dates: start: 20150326
  6. MAGALDRATE [Concomitant]
     Active Substance: MAGALDRATE
     Indication: PRODUCT USED FOR UNKNOWN INDICATION
     Dosage: 10 CM3, QD (BEFORE PREDNISONE)
     Route: 065
  7. EXJADE [Suspect]
     Active Substance: DEFERASIROX
     Indication: SICKLE CELL ANAEMIA
     Dosage: 10 MG/KG, QD (500 MG ONCE DAILY)
     Route: 048
     Dates: start: 20141112, end: 20150325

REACTIONS (14)
  - Platelet count decreased [Recovered/Resolved]
  - Infection [Unknown]
  - Pallor [Recovered/Resolved]
  - Mouth ulceration [Unknown]
  - Noninfective gingivitis [Not Recovered/Not Resolved]
  - Gingival bleeding [Unknown]
  - Haematocrit decreased [Recovered/Resolved]
  - Bone marrow failure [Not Recovered/Not Resolved]
  - Petechiae [Recovering/Resolving]
  - Gingival bleeding [Recovered/Resolved]
  - Immune system disorder [Unknown]
  - Red blood cell count decreased [Recovered/Resolved]
  - Gingival bleeding [Recovered/Resolved]
  - Pallor [Recovered/Resolved]

NARRATIVE: CASE EVENT DATE: 20150707
